FAERS Safety Report 6815843-4 (Version None)
Quarter: 2010Q3

REPORT INFORMATION
  Report Type: 
  Country: None (occurrence: None)
  Receive Date: 20100705
  Receipt Date: 20100628
  Transmission Date: 20110219
  Serious: Yes (Hospitalization, Other)
  Sender: FDA-Public Use
  Company Number: US-BIOGENIDEC-2008BI026805

PATIENT
  Age: 46 Year
  Sex: Female

DRUGS (2)
  1. AVONEX [Suspect]
     Indication: MULTIPLE SCLEROSIS
     Route: 030
     Dates: start: 20050424, end: 20081201
  2. AVONEX [Suspect]
     Route: 030
     Dates: start: 20100525

REACTIONS (14)
  - ASTHENIA [None]
  - DIVERTICULITIS [None]
  - INFLUENZA LIKE ILLNESS [None]
  - INFUSION SITE HAEMATOMA [None]
  - INJURY ASSOCIATED WITH DEVICE [None]
  - INTESTINAL PERFORATION [None]
  - LOSS OF CONTROL OF LEGS [None]
  - OEDEMA PERIPHERAL [None]
  - POSTOPERATIVE RENAL FAILURE [None]
  - RECTAL HAEMORRHAGE [None]
  - SWELLING FACE [None]
  - WEIGHT DECREASED [None]
  - WEIGHT INCREASED [None]
  - WHITE BLOOD CELL COUNT INCREASED [None]
